FAERS Safety Report 8088291-X (Version None)
Quarter: 2012Q1

REPORT INFORMATION
  Report Type: 
  Country: None (occurrence: None)
  Receive Date: 20120128
  Receipt Date: 20110421
  Transmission Date: 20120608
  Serious: No
  Sender: FDA-Public Use
  Company Number: US-ABBOTT-11P-163-0721283-00

PATIENT
  Sex: Female
  Weight: 60.836 kg

DRUGS (5)
  1. HUMIRA [Suspect]
     Indication: RHEUMATOID ARTHRITIS
     Dates: start: 20110301
  2. UNKNOWN BLOOD PRESSURE PILL [Concomitant]
     Indication: HYPERTENSION
  3. PREDNISONE TAB [Concomitant]
     Indication: RHEUMATOID ARTHRITIS
  4. POTASSIUM [Concomitant]
     Indication: MINERAL SUPPLEMENTATION
  5. VICODIN [Concomitant]
     Indication: PAIN

REACTIONS (1)
  - INJECTION SITE PAIN [None]
